FAERS Safety Report 11766075 (Version 2)
Quarter: 2015Q4

REPORT INFORMATION
  Report Type: Spontaneous
  Country: IT (occurrence: IT)
  Receive Date: 20151122
  Receipt Date: 20151204
  Transmission Date: 20160304
  Serious: Yes (Other)
  Sender: FDA-Public Use
  Company Number: IT-TEVA-610523ACC

PATIENT
  Age: 78 Year
  Sex: Male

DRUGS (6)
  1. SIMVASTATIN. [Concomitant]
     Active Substance: SIMVASTATIN
     Indication: PRODUCT USED FOR UNKNOWN INDICATION
     Dosage: 20 MG
     Route: 048
  2. COMBISARTAN - 160 MG/12.5 MG COMPRESSE RIVESTITE CON FILM [Suspect]
     Active Substance: HYDROCHLOROTHIAZIDE\VALSARTAN
     Indication: INTRAOCULAR PRESSURE INCREASED
     Dosage: 1 DOSAGE FORMS DAILY; 1 DOSAGE FORM, FORM STRENGTH: 160 MG/12.5 MG
     Route: 048
     Dates: start: 20150101, end: 20150721
  3. COSOPT PF [Suspect]
     Active Substance: DORZOLAMIDE HYDROCHLORIDE\TIMOLOL MALEATE
     Indication: INTRAOCULAR PRESSURE INCREASED
     Dosage: 3 GTT DAILY;
     Route: 047
     Dates: start: 20150720, end: 20150721
  4. ACETYLSALICYLIC ACID [Concomitant]
     Active Substance: ASPIRIN
     Indication: PRODUCT USED FOR UNKNOWN INDICATION
     Dosage: 100 MG
     Route: 048
  5. AMLODIPINE [Suspect]
     Active Substance: AMLODIPINE BESYLATE
     Indication: INTRAOCULAR PRESSURE INCREASED
     Dosage: 5 MILLIGRAM DAILY;
     Route: 048
     Dates: start: 20150101, end: 20150721
  6. BETABIOPTAL - 0.2% + 0.5% COLLIRIO SOSPENSIONE [Concomitant]
     Indication: PRODUCT USED FOR UNKNOWN INDICATION
     Dosage: FORM STRENGTH: 0.2% + 0.5%
     Route: 047

REACTIONS (1)
  - Presyncope [Recovering/Resolving]

NARRATIVE: CASE EVENT DATE: 20150721
